FAERS Safety Report 8558958-5 (Version None)
Quarter: 2012Q3

REPORT INFORMATION
  Report Type: 
  Country: None (occurrence: None)
  Receive Date: 20120802
  Receipt Date: 20120730
  Transmission Date: 20120928
  Serious: Yes (Hospitalization)
  Sender: FDA-Public Use
  Company Number: US-AMGEN-USASP2012047474

PATIENT
  Age: 58 Year
  Sex: Female

DRUGS (1)
  1. ENBREL [Suspect]
     Indication: PSORIASIS
     Dosage: 50 MG, 2-3 TIMES PER WEEK.
     Route: 058
     Dates: start: 20080101, end: 20120301

REACTIONS (3)
  - HYPOKINESIA [None]
  - PSORIASIS [None]
  - OSTEOARTHRITIS [None]
